FAERS Safety Report 15850563 (Version 1)
Quarter: 2019Q1

REPORT INFORMATION
  Report Type: Spontaneous
  Country: US (occurrence: US)
  Receive Date: 20190121
  Receipt Date: 20190121
  Transmission Date: 20190417
  Serious: No
  Sender: FDA-Public Use
  Company Number: US-NEUROCRINE BIOSCIENCES INC.-2019NBI00104

PATIENT
  Age: 72 Year
  Sex: Male

DRUGS (2)
  1. INGREZZA [Suspect]
     Active Substance: VALBENAZINE
     Indication: TARDIVE DYSKINESIA
     Dates: start: 201708, end: 201712
  2. INGREZZA [Suspect]
     Active Substance: VALBENAZINE
     Dates: start: 201804

REACTIONS (2)
  - Intentional product use issue [Unknown]
  - Drug effect incomplete [None]
